FAERS Safety Report 6823868-8 (Version None)
Quarter: 2010Q3

REPORT INFORMATION
  Report Type: 
  Country: None (occurrence: None)
  Receive Date: 20100708
  Receipt Date: 20060916
  Transmission Date: 20110219
  Serious: No
  Sender: FDA-Public Use
  Company Number: US-PFIZER INC-2006113988

PATIENT
  Age: 51 Year
  Sex: Male
  Weight: 83.91 kg

DRUGS (3)
  1. CHANTIX [Suspect]
     Indication: SMOKING CESSATION THERAPY
     Dates: start: 20060901
  2. BENADRYL [Suspect]
     Indication: PRURITUS
     Dates: start: 20060901
  3. ZOCOR [Concomitant]

REACTIONS (1)
  - PRURITUS [None]
